FAERS Safety Report 7372804-7 (Version None)
Quarter: 2011Q1

REPORT INFORMATION
  Report Type: 
  Country: None (occurrence: None)
  Receive Date: 20110324
  Receipt Date: 20110104
  Transmission Date: 20110831
  Serious: No
  Sender: FDA-Public Use
  Company Number: US-BAUSCH-2011BL000029

PATIENT
  Age: 57 Year
  Sex: Male

DRUGS (4)
  1. BESIVANCE [Suspect]
     Indication: OFF LABEL USE
     Route: 047
     Dates: start: 20101221, end: 20101221
  2. XIBROM [Concomitant]
     Indication: POSTOPERATIVE CARE
     Route: 047
  3. LOTEMAX [Concomitant]
     Indication: POSTOPERATIVE CARE
     Route: 047
  4. BESIVANCE [Suspect]
     Indication: POSTOPERATIVE CARE
     Route: 047
     Dates: start: 20101221, end: 20101221

REACTIONS (1)
  - FOREIGN BODY SENSATION IN EYES [None]
